FAERS Safety Report 20279083 (Version 4)
Quarter: 2022Q2

REPORT INFORMATION
  Report Type: Spontaneous
  Country: US (occurrence: US)
  Receive Date: 20220103
  Receipt Date: 20220528
  Transmission Date: 20220721
  Serious: Yes (Other)
  Sender: FDA-Public Use
  Company Number: US-EPICPHARMA-US-2021EPCSPO01356

PATIENT
  Age: 73 Year
  Sex: Male

DRUGS (6)
  1. FUROSEMIDE [Suspect]
     Active Substance: FUROSEMIDE
     Indication: Product used for unknown indication
     Route: 065
  2. SPIRONOLACTONE [Concomitant]
     Active Substance: SPIRONOLACTONE
     Indication: Product used for unknown indication
     Route: 065
  3. ENTRESTO [Concomitant]
     Active Substance: SACUBITRIL\VALSARTAN
     Indication: Product used for unknown indication
     Route: 065
  4. ENTRESTO [Concomitant]
     Active Substance: SACUBITRIL\VALSARTAN
     Route: 065
  5. ENTRESTO [Concomitant]
     Active Substance: SACUBITRIL\VALSARTAN
     Route: 048
     Dates: start: 20210524
  6. METOPROLOL [Concomitant]
     Active Substance: METOPROLOL
     Indication: Product used for unknown indication
     Route: 065

REACTIONS (14)
  - Bladder cancer [Unknown]
  - Cerebrovascular accident [Unknown]
  - Syncope [Unknown]
  - Nephrolithiasis [Unknown]
  - Renal impairment [Unknown]
  - Atrial fibrillation [Unknown]
  - Psychogenic seizure [Unknown]
  - Weight decreased [Unknown]
  - Pacemaker generated arrhythmia [Unknown]
  - Arthritis [Unknown]
  - Poor quality sleep [Unknown]
  - Fluid retention [Unknown]
  - Flatulence [Unknown]
  - Abdominal distension [Unknown]
